FAERS Safety Report 18958420 (Version 1)
Quarter: 2021Q1

REPORT INFORMATION
  Report Type: Spontaneous
  Country: US (occurrence: US)
  Receive Date: 20210302
  Receipt Date: 20210302
  Transmission Date: 20210420
  Serious: No
  Sender: FDA-Public Use
  Company Number: US-BAYER-2021-083347

PATIENT
  Age: 61 Year
  Sex: Female

DRUGS (2)
  1. ASPIRIN (CARDIO) [Suspect]
     Active Substance: ASPIRIN
     Indication: PALPITATIONS
     Dosage: 1 DF, QD
     Dates: start: 20210109
  2. BETASERON [Suspect]
     Active Substance: INTERFERON BETA-1B
     Indication: PRODUCT USED FOR UNKNOWN INDICATION
     Dosage: UNK
     Route: 058

REACTIONS (3)
  - Palpitations [Recovering/Resolving]
  - Drug effective for unapproved indication [None]
  - Cough [Recovering/Resolving]

NARRATIVE: CASE EVENT DATE: 20210109
